FAERS Safety Report 9145995 (Version 3)
Quarter: 2014Q1

REPORT INFORMATION
  Report Type: Spontaneous
  Country: US (occurrence: US)
  Receive Date: 20130307
  Receipt Date: 20140127
  Transmission Date: 20141002
  Serious: Yes (Hospitalization, Other)
  Sender: FDA-Public Use
  Company Number: US-009507513-1303USA001921

PATIENT
  Sex: Female
  Weight: 72.56 kg

DRUGS (3)
  1. FOSAMAX [Suspect]
     Indication: OSTEOPOROSIS PROPHYLAXIS
     Dosage: 10 MG, QD
     Route: 048
     Dates: start: 199712, end: 200204
  2. FOSAMAX [Suspect]
     Dosage: 70 MG, QW
     Route: 048
     Dates: start: 200205, end: 200808
  3. ALENDRONATE SODIUM [Suspect]
     Indication: OSTEOPOROSIS PROPHYLAXIS
     Dosage: 70 MG, QW
     Route: 048
     Dates: start: 200809, end: 201306

REACTIONS (22)
  - Femur fracture [Recovered/Resolved]
  - Intramedullary rod insertion [Unknown]
  - Deafness [Unknown]
  - Pancreatitis [Unknown]
  - Cerebrovascular accident [Unknown]
  - Colonoscopy [Unknown]
  - Blood pressure management [Unknown]
  - Oesophagogastroduodenoscopy [Unknown]
  - Blood cholesterol increased [Unknown]
  - Hypertension [Unknown]
  - Tooth extraction [Unknown]
  - Ear infection [Unknown]
  - Seroma [Recovering/Resolving]
  - Haematoma [Recovered/Resolved]
  - Spinal osteoarthritis [Unknown]
  - Vertebral foraminal stenosis [Unknown]
  - Bursitis [Recovering/Resolving]
  - Bursitis [Unknown]
  - Hysterectomy [Unknown]
  - Stress fracture [Recovered/Resolved]
  - Osteoarthritis [Unknown]
  - Osteopenia [Unknown]
